FAERS Safety Report 7905060-9 (Version None)
Quarter: 2011Q4

REPORT INFORMATION
  Report Type: 
  Country: None (occurrence: None)
  Receive Date: 20111109
  Receipt Date: 20111107
  Transmission Date: 20120403
  Serious: Yes (Death)
  Sender: FDA-Public Use
  Company Number: PHHY2011US51240

PATIENT
  Sex: Male

DRUGS (2)
  1. VALIUM [Concomitant]
     Indication: MUSCLE RELAXANT THERAPY
     Dosage: 5 MG, QID
     Dates: start: 20070101
  2. GILENYA [Suspect]
     Indication: MULTIPLE SCLEROSIS
     Dosage: 0.5 MG, DAILY
     Route: 048
     Dates: start: 20110516

REACTIONS (3)
  - OEDEMA [None]
  - GUN SHOT WOUND [None]
  - EJECTION FRACTION DECREASED [None]
